FAERS Safety Report 20583504 (Version 2)
Quarter: 2022Q1

REPORT INFORMATION
  Report Type: Spontaneous
  Country: ES (occurrence: ES)
  Receive Date: 20220311
  Receipt Date: 20220318
  Transmission Date: 20220424
  Serious: Yes (Hospitalization, Other)
  Sender: FDA-Public Use
  Company Number: ES-MLMSERVICE-20220224-3398775-1

PATIENT
  Age: 64 Year
  Sex: Female

DRUGS (9)
  1. OXALIPLATIN [Suspect]
     Active Substance: OXALIPLATIN
     Indication: Retroperitoneal lymphadenopathy
     Dosage: SUBCUTANEOUS PUMP
     Route: 058
  2. OXALIPLATIN [Suspect]
     Active Substance: OXALIPLATIN
     Indication: Colorectal adenocarcinoma
  3. OXALIPLATIN [Suspect]
     Active Substance: OXALIPLATIN
     Indication: Abdominal lymphadenopathy
  4. FLUOROURACIL [Concomitant]
     Active Substance: FLUOROURACIL
     Indication: Colorectal adenocarcinoma
     Dosage: SUBCUTANEOUS PUMP
     Route: 058
  5. FLUOROURACIL [Concomitant]
     Active Substance: FLUOROURACIL
     Indication: Retroperitoneal lymphadenopathy
  6. FLUOROURACIL [Concomitant]
     Active Substance: FLUOROURACIL
     Indication: Abdominal lymphadenopathy
  7. LEUCOVORIN [Concomitant]
     Active Substance: LEUCOVORIN
     Indication: Retroperitoneal lymphadenopathy
     Dosage: SUBCUTANEOUS PUMP
     Route: 058
  8. LEUCOVORIN [Concomitant]
     Active Substance: LEUCOVORIN
     Indication: Abdominal lymphadenopathy
  9. LEUCOVORIN [Concomitant]
     Active Substance: LEUCOVORIN
     Indication: Colorectal adenocarcinoma

REACTIONS (8)
  - Administration site extravasation [Recovering/Resolving]
  - Infusion site extravasation [Recovering/Resolving]
  - Musculoskeletal chest pain [Recovering/Resolving]
  - Infusion site induration [Recovering/Resolving]
  - Neck pain [Recovering/Resolving]
  - Oedema [Recovering/Resolving]
  - Infusion site erythema [Recovering/Resolving]
  - C-reactive protein increased [Unknown]
